FAERS Safety Report 6518991-1 (Version None)
Quarter: 2009Q4

REPORT INFORMATION
  Report Type: 
  Country: None (occurrence: None)
  Receive Date: 20091228
  Receipt Date: 20091218
  Transmission Date: 20100525
  Serious: Yes (Hospitalization)
  Sender: FDA-Public Use
  Company Number: FR-WYE-G05181609

PATIENT
  Sex: Female

DRUGS (8)
  1. TAZOCILLINE [Suspect]
     Dosage: 12 G TOTAL DAILY
     Route: 042
     Dates: start: 20070705, end: 20070715
  2. LASILIX [Concomitant]
     Dosage: UNKNOWN
     Route: 042
     Dates: start: 20070705, end: 20070719
  3. TAVANIC [Concomitant]
     Dosage: UNKNOWN
     Dates: start: 20070601, end: 20070704
  4. TAVANIC [Concomitant]
     Dosage: UNKNOWN
     Dates: start: 20070715, end: 20070719
  5. ERYTHROMYCIN [Concomitant]
     Dosage: 3 G TOTAL DAILY
     Route: 042
     Dates: start: 20070705, end: 20070715
  6. AUGMENTIN [Suspect]
     Dosage: UNKNOWN
     Dates: start: 20070715, end: 20070719
  7. VANCOMYCIN [Concomitant]
     Route: 042
     Dates: start: 20070705, end: 20070719
  8. AMIKLIN [Concomitant]
     Dosage: UNKNOWN
     Dates: start: 20070705, end: 20070711

REACTIONS (7)
  - DERMATITIS EXFOLIATIVE [None]
  - DRUG HYPERSENSITIVITY [None]
  - ECZEMA [None]
  - ERYTHEMA [None]
  - TOXIC SKIN ERUPTION [None]
  - TYPE IV HYPERSENSITIVITY REACTION [None]
  - VASCULITIS [None]
